FAERS Safety Report 24565445 (Version 1)
Quarter: 2024Q4

REPORT INFORMATION
  Report Type: Spontaneous
  Country: FR (occurrence: FR)
  Receive Date: 20241030
  Receipt Date: 20241030
  Transmission Date: 20250115
  Serious: Yes (Other)
  Sender: RANBAXY
  Company Number: FR-SUN PHARMACEUTICAL INDUSTRIES LTD-2024RR-476411

PATIENT
  Age: 26 Year
  Sex: Female

DRUGS (2)
  1. MORPHINE [Suspect]
     Active Substance: MORPHINE
     Indication: Product dispensing error
     Dosage: 10 MILLIGRAM
     Route: 029
     Dates: start: 20240906
  2. SUFENTA [Suspect]
     Active Substance: SUFENTANIL CITRATE
     Indication: Caesarean section
     Dosage: 5 MICROGRAM
     Route: 029
     Dates: start: 20240906

REACTIONS (2)
  - Wrong product administered [Recovered/Resolved]
  - Vomiting [Recovered/Resolved]

NARRATIVE: CASE EVENT DATE: 20240906
